FAERS Safety Report 9246092 (Version 2)
Quarter: 2013Q2

REPORT INFORMATION
  Report Type: Report from Study
  Country: US (occurrence: US)
  Receive Date: 20130422
  Receipt Date: 20130613
  Transmission Date: 20140414
  Serious: Yes (Hospitalization)
  Sender: FDA-Public Use
  Company Number: US-ROCHE-1215767

PATIENT
  Age: 62 Year
  Sex: Female
  Weight: 68.1 kg

DRUGS (11)
  1. TRASTUZUMAB [Suspect]
     Indication: BREAST CANCER
     Dosage: LAST DOSE ON 26/MAR/2013 PRIOR TO SAE
     Route: 042
     Dates: start: 20130212, end: 20130410
  2. CARBOPLATIN [Suspect]
     Indication: BREAST CANCER
     Dosage: 6 AUC, LAST DOSE PRIOR TO SAE ON 26/MAR/2013
     Route: 042
     Dates: start: 20130212, end: 20130410
  3. DOCETAXEL [Suspect]
     Indication: BREAST CANCER
     Dosage: LAST DOSE PRIOR TO SAE ON 26/MAR/2013
     Route: 042
     Dates: start: 20130212, end: 20130410
  4. XANAX [Concomitant]
     Route: 065
     Dates: start: 2003
  5. DILTIAZEM SR [Concomitant]
     Route: 065
     Dates: start: 2003
  6. NEXIUM [Concomitant]
     Route: 065
     Dates: start: 20130324
  7. ATIVAN [Concomitant]
     Route: 065
     Dates: start: 2003
  8. MEGACE ES [Concomitant]
     Dosage: 625 MG/5 ML
     Route: 065
     Dates: start: 20130305
  9. CARAFATE [Concomitant]
     Dosage: 110 MG/ML
     Route: 065
     Dates: start: 20130409
  10. LORTAAN [Concomitant]
     Route: 065
     Dates: start: 20130201
  11. POTASSIUM GUAIACOLSULFONATE [Concomitant]
     Route: 065

REACTIONS (2)
  - Gastroenteritis [Recovered/Resolved]
  - Small intestinal obstruction [Recovered/Resolved]
